FAERS Safety Report 11943640 (Version 1)
Quarter: 2016Q1

REPORT INFORMATION
  Report Type: Spontaneous
  Country: US (occurrence: US)
  Receive Date: 20160125
  Receipt Date: 20160125
  Transmission Date: 20160526
  Serious: No
  Sender: FDA-Public Use
  Company Number: US-UNITED THERAPEUTICS-UNT-2015-012732

PATIENT
  Sex: Female
  Weight: 81.63 kg

DRUGS (3)
  1. REVATIO [Concomitant]
     Active Substance: SILDENAFIL CITRATE
     Indication: PRODUCT USED FOR UNKNOWN INDICATION
  2. REMODULIN [Suspect]
     Active Substance: TREPROSTINIL
     Dosage: 0.012 ?G/KG/MIN, CONTINUING
     Route: 058
  3. REMODULIN [Suspect]
     Active Substance: TREPROSTINIL
     Indication: PULMONARY ARTERIAL HYPERTENSION
     Dosage: 0.014 ?G/KG/MIN, CONTINUING
     Route: 058
     Dates: start: 20141230

REACTIONS (10)
  - Pain [Recovered/Resolved]
  - Mood swings [Unknown]
  - Nausea [Recovered/Resolved]
  - Bacterial infection [Recovering/Resolving]
  - Feeling abnormal [Unknown]
  - Stent placement [Recovered/Resolved]
  - Infusion site pain [Unknown]
  - Infusion site haemorrhage [Unknown]
  - Dizziness [Not Recovered/Not Resolved]
  - Lymphadenopathy [Not Recovered/Not Resolved]

NARRATIVE: CASE EVENT DATE: 2015
